FAERS Safety Report 14870923 (Version 1)
Quarter: 2018Q2

REPORT INFORMATION
  Report Type: Spontaneous
  Country: US (occurrence: US)
  Receive Date: 20180424
  Receipt Date: 20180424
  Transmission Date: 20180711
  Serious: Yes (Disabling, Other)
  Sender: FDA-Public Use
  Company Number: None

PATIENT
  Age: 41 Year
  Sex: Female
  Weight: 47.25 kg

DRUGS (1)
  1. 1% HYDROCORTISONE CREAM [Suspect]
     Active Substance: HYDROCORTISONE
     Indication: DERMATITIS
     Route: 061
     Dates: start: 20130701, end: 20140301

REACTIONS (7)
  - Secretion discharge [None]
  - Eczema [None]
  - Fatigue [None]
  - Feeling abnormal [None]
  - Skin exfoliation [None]
  - Vision blurred [None]
  - Drug withdrawal syndrome [None]

NARRATIVE: CASE EVENT DATE: 20130701
